FAERS Safety Report 7814224-4 (Version None)
Quarter: 2011Q4

REPORT INFORMATION
  Report Type: 
  Country: None (occurrence: None)
  Receive Date: 20111014
  Receipt Date: 20111007
  Transmission Date: 20120403
  Serious: Yes (Hospitalization)
  Sender: FDA-Public Use
  Company Number: JP-BRISTOL-MYERS SQUIBB COMPANY-16125833

PATIENT
  Age: 72 Year
  Sex: Male
  Weight: 48 kg

DRUGS (5)
  1. SAXAGLIPTIN [Suspect]
     Indication: TYPE 2 DIABETES MELLITUS
     Dosage: TABS
     Route: 048
     Dates: start: 20101028, end: 20110928
  2. GLUCOBAY [Suspect]
     Indication: TYPE 2 DIABETES MELLITUS
     Dosage: TABS
     Route: 048
     Dates: start: 20090408, end: 20110928
  3. MAGMITT [Suspect]
     Indication: CONSTIPATION
     Dosage: TABS
     Route: 048
     Dates: start: 20110507, end: 20110928
  4. BIOFERMIN [Suspect]
     Indication: PROPHYLAXIS
     Dosage: ORAL POWDER
     Route: 048
     Dates: start: 20110804, end: 20110928
  5. XALATAN [Concomitant]
     Dosage: EYE DROPS
     Dates: start: 19990721

REACTIONS (1)
  - INTESTINAL OBSTRUCTION [None]
